FAERS Safety Report 10738573 (Version 1)
Quarter: 2015Q1

REPORT INFORMATION
  Report Type: Spontaneous
  Country: US (occurrence: US)
  Receive Date: 20150126
  Receipt Date: 20150126
  Transmission Date: 20150721
  Serious: Yes (Hospitalization)
  Sender: FDA-Public Use
  Company Number: US-CELGENE-USA-2015012667

PATIENT
  Age: 82 Year
  Sex: Male
  Weight: 90.8 kg

DRUGS (2)
  1. POMALYST [Suspect]
     Active Substance: POMALIDOMIDE
     Indication: PLASMA CELL MYELOMA
     Dosage: 4 MILLIGRAM
     Route: 048
     Dates: start: 201412, end: 20141214
  2. STEROIDS [Concomitant]
     Active Substance: UNSPECIFIED INGREDIENT
     Indication: PRODUCT USED FOR UNKNOWN INDICATION
     Dosage: EVERY SUNDAY
     Route: 065

REACTIONS (20)
  - Throat tightness [Unknown]
  - Nausea [Unknown]
  - Pruritus [Not Recovered/Not Resolved]
  - Burning sensation [Not Recovered/Not Resolved]
  - Dyspnoea [Unknown]
  - Oedema peripheral [Unknown]
  - Blister [Unknown]
  - Pyrexia [Unknown]
  - Red blood cell count decreased [Unknown]
  - Bone pain [Unknown]
  - Dizziness [Unknown]
  - Blindness transient [Unknown]
  - Pneumonia [Unknown]
  - Bronchitis [Unknown]
  - Herpes zoster [Unknown]
  - White blood cell count decreased [Unknown]
  - Chest pain [Unknown]
  - Skin ulcer [Unknown]
  - Cough [Not Recovered/Not Resolved]
  - Rhinorrhoea [Unknown]

NARRATIVE: CASE EVENT DATE: 20141212
